FAERS Safety Report 22541167 (Version 1)
Quarter: 2023Q2

REPORT INFORMATION
  Report Type: Spontaneous
  Country: US (occurrence: US)
  Receive Date: 20230609
  Receipt Date: 20230609
  Transmission Date: 20230721
  Serious: No
  Sender: FDA-Public Use
  Company Number: US-PFIZER INC-202300214811

PATIENT
  Age: 49 Year
  Sex: Female

DRUGS (1)
  1. METAXALONE [Suspect]
     Active Substance: METAXALONE
     Indication: Pain
     Dosage: UNK

REACTIONS (3)
  - Therapeutic product effect incomplete [Unknown]
  - Diarrhoea [Unknown]
  - Nausea [Unknown]
